FAERS Safety Report 5974655-4 (Version None)
Quarter: 2008Q4

REPORT INFORMATION
  Report Type: 
  Country: None (occurrence: None)
  Receive Date: 20081201
  Receipt Date: 20080205
  Transmission Date: 20090506
  Serious: No
  Sender: FDA-Public Use
  Company Number: US-AMGEN-KDL264234

PATIENT
  Sex: Female

DRUGS (1)
  1. ENBREL [Suspect]
     Indication: PSORIASIS
     Route: 058
     Dates: start: 20071226

REACTIONS (4)
  - FATIGUE [None]
  - MICTURITION URGENCY [None]
  - POLLAKIURIA [None]
  - URINE ANALYSIS ABNORMAL [None]
